FAERS Safety Report 12528345 (Version 1)
Quarter: 2016Q3

REPORT INFORMATION
  Report Type: Spontaneous
  Country: CA (occurrence: CA)
  Receive Date: 20160705
  Receipt Date: 20160705
  Transmission Date: 20161109
  Serious: Yes (Hospitalization)
  Sender: FDA-Public Use
  Company Number: PHHY2016CA089263

PATIENT
  Age: 73 Year
  Sex: Female
  Weight: 69 kg

DRUGS (9)
  1. SEVOFLURANE. [Suspect]
     Active Substance: SEVOFLURANE
     Indication: ANAESTHESIA
     Route: 055
  2. MIDAZOLAM [Suspect]
     Active Substance: MIDAZOLAM\MIDAZOLAM HYDROCHLORIDE
     Indication: ANAESTHESIA
     Dosage: 5 MG, UNK
     Route: 042
  3. VITAMIN D [Concomitant]
     Active Substance: CHOLECALCIFEROL
     Indication: PRODUCT USED FOR UNKNOWN INDICATION
     Route: 065
  4. SUFENTANIL [Suspect]
     Active Substance: SUFENTANIL
     Indication: ANAESTHESIA
     Dosage: 25 UG, UNK
     Route: 042
  5. SUFENTANIL [Suspect]
     Active Substance: SUFENTANIL
     Dosage: 0.4 UG/KG, QH
     Route: 042
  6. ROCURONIUM BROMIDE. [Suspect]
     Active Substance: ROCURONIUM BROMIDE
     Dosage: 50 MG, UNK
     Route: 065
  7. ROCURONIUM BROMIDE. [Suspect]
     Active Substance: ROCURONIUM BROMIDE
     Indication: ANAESTHESIA
     Dosage: 100 MG, UNK
     Route: 042
  8. KETAMINE [Suspect]
     Active Substance: KETAMINE
     Indication: ANAESTHESIA
     Dosage: 25 MG, UNK
     Route: 042
  9. ASPIRIN//ACETYLSALICYLIC ACID [Concomitant]
     Active Substance: ASPIRIN
     Indication: PRODUCT USED FOR UNKNOWN INDICATION
     Route: 065

REACTIONS (1)
  - Post procedural stroke [Recovered/Resolved]
